FAERS Safety Report 7281347-0 (Version None)
Quarter: 2011Q1

REPORT INFORMATION
  Report Type: 
  Country: None (occurrence: None)
  Receive Date: 20110208
  Receipt Date: 20110206
  Transmission Date: 20110831
  Serious: Yes (Other)
  Sender: FDA-Public Use
  Company Number: US-CEPHALON-2010002515

PATIENT
  Sex: Female
  Weight: 76 kg

DRUGS (1)
  1. NUVIGIL [Suspect]
     Route: 048
     Dates: start: 20100404, end: 20100408

REACTIONS (6)
  - APHASIA [None]
  - DYSPNOEA [None]
  - VOMITING [None]
  - URTICARIA [None]
  - PRURITUS [None]
  - LARYNGEAL OEDEMA [None]
